FAERS Safety Report 9344961 (Version 1)
Quarter: 2013Q2

REPORT INFORMATION
  Report Type: Spontaneous
  Country: FR (occurrence: FR)
  Receive Date: 20130612
  Receipt Date: 20130612
  Transmission Date: 20140414
  Serious: Yes (Death, Hospitalization)
  Sender: FDA-Public Use
  Company Number: FR-TEVA-411445ISR

PATIENT
  Age: 54 Year
  Sex: Male

DRUGS (2)
  1. FUROSEMIDE [Suspect]
     Dates: start: 20130313
  2. FUROSEMIDE [Suspect]
     Dates: start: 20130415

REACTIONS (7)
  - Death [Fatal]
  - Pulmonary oedema [Unknown]
  - Fall [Unknown]
  - Cardiac infection [Unknown]
  - Somnolence [Unknown]
  - Oedema peripheral [Unknown]
  - Localised oedema [Unknown]
